FAERS Safety Report 7307334-1 (Version None)
Quarter: 2011Q1

REPORT INFORMATION
  Report Type: 
  Country: None (occurrence: None)
  Receive Date: 20110223
  Receipt Date: 20110216
  Transmission Date: 20110831
  Serious: Yes (Other)
  Sender: FDA-Public Use
  Company Number: GB-PFIZER INC-2011035206

PATIENT
  Age: 51 Year
  Sex: Female

DRUGS (3)
  1. SILDENAFIL CITRATE [Suspect]
     Indication: PULMONARY ARTERIAL HYPERTENSION
     Dosage: UNK
  2. NORADRENALINE [Concomitant]
     Dosage: 0.9 MCG/KG/MIN
  3. NORADRENALINE [Concomitant]
     Dosage: 0.6 MCG/KG/MIN

REACTIONS (1)
  - HYPOTENSION [None]
